FAERS Safety Report 9330545 (Version 3)
Quarter: 2013Q3

REPORT INFORMATION
  Report Type: Spontaneous
  Country: BR (occurrence: BR)
  Receive Date: 20130605
  Receipt Date: 20130823
  Transmission Date: 20140515
  Serious: Yes (Other)
  Sender: FDA-Public Use
  Company Number: PHHY2013BR043944

PATIENT
  Age: 82 Year
  Sex: Male

DRUGS (2)
  1. APRESOLIN [Suspect]
     Dosage: 2 DF (50MG), DAILY
     Route: 048
  2. FORASEQ [Suspect]
     Dosage: 400 UG, UNK

REACTIONS (4)
  - Renal disorder [Unknown]
  - Swelling [Recovered/Resolved]
  - Blood pressure increased [Recovered/Resolved]
  - Myalgia [Unknown]
